FAERS Safety Report 5789883-0 (Version None)
Quarter: 2008Q2

REPORT INFORMATION
  Report Type: 
  Country: None (occurrence: None)
  Receive Date: 20080626
  Receipt Date: 20080614
  Transmission Date: 20081010
  Serious: Yes (Other)
  Sender: FDA-Public Use
  Company Number: US-BAYER-200820621GPV

PATIENT

DRUGS (3)
  1. ASPIRIN [Suspect]
     Indication: CARDIOVASCULAR EVENT PROPHYLAXIS
     Dosage: UNIT DOSE: 81 MG
     Route: 065
  2. CELECOXIB [Suspect]
     Indication: OSTEOARTHRITIS
     Dosage: UNIT DOSE: 200 MG
     Route: 065
  3. GELUSIL ANTACID [Concomitant]
     Indication: GASTROINTESTINAL DISORDER

REACTIONS (2)
  - DUODENAL ULCER [None]
  - GASTRIC ULCER [None]
